FAERS Safety Report 18360571 (Version 1)
Quarter: 2020Q4

REPORT INFORMATION
  Report Type: Spontaneous
  Country: US (occurrence: US)
  Receive Date: 20201008
  Receipt Date: 20201008
  Transmission Date: 20210114
  Serious: No
  Sender: FDA-Public Use
  Company Number: US-VIIV HEALTHCARE LIMITED-US2018AMR240779

PATIENT
  Sex: Female

DRUGS (3)
  1. EVOTAZ [Concomitant]
     Active Substance: ATAZANAVIR SULFATE\COBICISTAT
     Indication: HIV INFECTION
     Dosage: UNK
  2. COMBIVIR [Suspect]
     Active Substance: LAMIVUDINE\ZIDOVUDINE
     Indication: HIV INFECTION
     Dosage: UNK
     Dates: start: 1998
  3. TIVICAY [Concomitant]
     Active Substance: DOLUTEGRAVIR SODIUM
     Indication: HIV INFECTION
     Dosage: UNK

REACTIONS (3)
  - Exposure during pregnancy [Unknown]
  - Drug resistance [Unknown]
  - Inappropriate schedule of product administration [Unknown]
